FAERS Safety Report 12716852 (Version 1)
Quarter: 2016Q3

REPORT INFORMATION
  Report Type: Spontaneous
  Country: JP (occurrence: JP)
  Receive Date: 20160906
  Receipt Date: 20160906
  Transmission Date: 20161109
  Serious: Yes (Other)
  Sender: FDA-Public Use
  Company Number: JP-FSC THERAPEUTICS-2016ECL00030

PATIENT
  Age: 53 Year
  Sex: Male

DRUGS (2)
  1. PARIET [Suspect]
     Active Substance: RABEPRAZOLE SODIUM
     Dosage: UNK
     Route: 048
     Dates: start: 201210, end: 201210
  2. TWO UNSPECIFIED SUSPECT MEDICATIONS [Concomitant]

REACTIONS (1)
  - Erythema multiforme [Unknown]
